FAERS Safety Report 6861272-7 (Version None)
Quarter: 2010Q3

REPORT INFORMATION
  Report Type: 
  Country: None (occurrence: None)
  Receive Date: 20100720
  Receipt Date: 20100708
  Transmission Date: 20110219
  Serious: Yes (Other)
  Sender: FDA-Public Use
  Company Number: KR-TYCO HEALTHCARE/MALLINCKRODT-T201001630

PATIENT

DRUGS (2)
  1. FLUOXETINE [Suspect]
     Dosage: UNK
  2. SUMATRIPTAN [Suspect]
     Dosage: UNK

REACTIONS (1)
  - INTESTINAL ISCHAEMIA [None]
